FAERS Safety Report 17391436 (Version 2)
Quarter: 2020Q2

REPORT INFORMATION
  Report Type: Spontaneous
  Country: US (occurrence: US)
  Receive Date: 20200207
  Receipt Date: 20200414
  Transmission Date: 20200713
  Serious: No
  Sender: FDA-Public Use
  Company Number: US-009507513-2002USA000702

PATIENT
  Sex: Female

DRUGS (2)
  1. NEXPLANON [Suspect]
     Active Substance: ETONOGESTREL
     Dosage: 1 ROD, EVERY 3 YEARS (LEFT ARM)
     Route: 059
     Dates: start: 20200117
  2. NEXPLANON [Suspect]
     Active Substance: ETONOGESTREL
     Indication: CONTRACEPTION
     Dosage: 1 ROD, EVERY 3 YEARS (LEFT ARM)
     Route: 059
     Dates: start: 2017, end: 201811

REACTIONS (5)
  - Implant site erythema [Unknown]
  - Medical device site discomfort [Not Recovered/Not Resolved]
  - Device placement issue [Recovered/Resolved]
  - Implant site irritation [Unknown]
  - Device placement issue [Not Recovered/Not Resolved]

NARRATIVE: CASE EVENT DATE: 2017
